FAERS Safety Report 8598089-1 (Version None)
Quarter: 2012Q3

REPORT INFORMATION
  Report Type: 
  Country: None (occurrence: None)
  Receive Date: 20120816
  Receipt Date: 20110621
  Transmission Date: 20120928
  Serious: Yes (Hospitalization)
  Sender: FDA-Public Use
  Company Number: DE-009507513-2011SP023929

PATIENT

DRUGS (101)
  1. POSACONAZOLE [Suspect]
     Indication: INFECTION PROPHYLAXIS
     Dosage: 300 MG, BID
     Route: 042
     Dates: start: 20110324, end: 20110324
  2. GRANISETRON [Concomitant]
     Dosage: UNK, Q12H
     Route: 042
     Dates: start: 20110406, end: 20110407
  3. ETOPOSIDE [Concomitant]
     Indication: ACUTE MYELOID LEUKAEMIA
     Dosage: UNK UNK, QD
     Route: 042
     Dates: start: 20110319, end: 20110321
  4. LORAZEPAM [Concomitant]
     Indication: DEPRESSION
     Dosage: UNK UNK, ONCE
     Route: 048
     Dates: start: 20110324, end: 20110324
  5. LORAZEPAM [Concomitant]
     Dosage: UNK, QD
     Route: 048
     Dates: start: 20110415, end: 20110422
  6. AMINO ACIDS (UNSPECIFIED) (+) CARBOHYDRATES (UNSPECIFIED) (+) ELECTROL [Concomitant]
     Indication: NUTRITIONAL SUPPORT
     Dosage: UNK UNK, ONCE
     Route: 042
     Dates: start: 20110414, end: 20110414
  7. POTASSIUM (UNSPECIFIED) [Concomitant]
     Indication: PROPHYLAXIS
     Dosage: UNK UNK, PRN
     Route: 042
     Dates: start: 20110415
  8. ALLOPURINOL [Concomitant]
     Dosage: UNK
     Route: 048
     Dates: start: 20110414
  9. OLIVE OIL (+) SOYBEAN OIL [Concomitant]
     Indication: PROPHYLAXIS
     Dosage: UNK UNK, QD
     Route: 042
     Dates: start: 20110323, end: 20110409
  10. PIPERACILLIN AND TAZOBACTAM [Concomitant]
     Indication: PROPHYLAXIS
     Dosage: UNK UNK, TID
     Route: 042
     Dates: start: 20110313, end: 20110324
  11. PIPERACILLIN AND TAZOBACTAM [Concomitant]
     Dosage: UNK
     Route: 042
     Dates: start: 20110414, end: 20110426
  12. FUROSEMIDE [Concomitant]
     Dosage: UNK
     Route: 042
     Dates: start: 20110419, end: 20110421
  13. MOMETASONE FUROATE [Concomitant]
     Indication: ALLERGY PROPHYLAXIS
     Dosage: UNK UNK, TID
     Route: 045
     Dates: start: 20110325, end: 20110410
  14. TILIDIN [Concomitant]
     Indication: ABDOMINAL PAIN
     Dosage: UNK UNK, ONCE
     Route: 048
     Dates: start: 20110412, end: 20110412
  15. MIDAZOLAM [Concomitant]
     Indication: SEDATIVE THERAPY
     Dosage: UNK UNK, ONCE
     Route: 042
     Dates: start: 20110413, end: 20110413
  16. NOXAFIL [Concomitant]
     Indication: INFECTION PROPHYLAXIS
     Dosage: UNK UNK, QD
     Route: 050
     Dates: start: 20110421
  17. TYROTHRICIN [Concomitant]
     Indication: PUNCTURE SITE INFECTION
     Dosage: UNK UNK, PRN
     Route: 061
     Dates: start: 20110324, end: 20110324
  18. PREDNISOLONE SODIUM SUCCINATE INJ [Concomitant]
     Indication: ALLERGIC TRANSFUSION REACTION
     Dosage: UNK UNK, ONCE
     Route: 042
     Dates: start: 20110322, end: 20110322
  19. PANTOPRAZOLE [Concomitant]
     Dosage: UNK
     Route: 048
     Dates: start: 20110402
  20. CLINDAMYCIN PHOSPHATE [Concomitant]
     Indication: BACTERIAL INFECTION
     Dosage: UNK UNK, TID
     Route: 042
     Dates: start: 20110322, end: 20110324
  21. FUROSEMIDE [Concomitant]
     Indication: EXTENSIVE INTERDIALYTIC WEIGHT GAIN
     Dosage: UNK UNK, PRN
     Route: 042
     Dates: start: 20110315, end: 20110408
  22. GRANISETRON [Concomitant]
     Dosage: UNK, ONCE
     Route: 042
     Dates: start: 20110411, end: 20110411
  23. DEXPANTHENOL [Concomitant]
     Indication: PROPHYLAXIS
     Dosage: UNK UNK, Q4H
     Route: 048
     Dates: start: 20110315, end: 20110413
  24. DEXPANTHENOL [Concomitant]
     Dosage: UNK, PRN
     Route: 048
     Dates: start: 20110415
  25. BUSERELIN ACETATE [Concomitant]
     Indication: MENORRHAGIA
     Dosage: UNK UNK, TID
     Route: 045
     Dates: start: 20110315, end: 20110323
  26. TORSEMIDE [Concomitant]
     Indication: PROPHYLAXIS
     Dosage: UNK UNK, Q12H
     Route: 048
     Dates: start: 20110408, end: 20110410
  27. TRETINOIN [Concomitant]
     Indication: ACUTE MYELOID LEUKAEMIA
     Dosage: UNK UNK, TID
     Route: 048
     Dates: start: 20110423, end: 20110425
  28. VITAMINS (UNSPECIFIED) [Concomitant]
     Indication: NUTRITIONAL SUPPORT
     Dosage: UNK UNK, ONCE
     Route: 042
     Dates: start: 20110414, end: 20110414
  29. DEXAMETHASONE [Concomitant]
     Indication: PROPHYLAXIS OF NAUSEA AND VOMITING
     Dosage: UNK UNK, Q12H
     Route: 048
     Dates: start: 20110418, end: 20110425
  30. POSACONAZOLE [Suspect]
     Dosage: UNK
     Route: 048
  31. PANTOPRAZOLE [Concomitant]
     Indication: GASTRITIS PROPHYLAXIS
     Dosage: UNK UNK, QD
     Route: 048
     Dates: start: 20110315, end: 20110324
  32. SODIUM BICARBONATE [Concomitant]
     Indication: PROPHYLAXIS
     Dosage: UNK UNK, PRN
     Route: 042
     Dates: start: 20110318
  33. POTASSIUM CHLORIDE [Concomitant]
     Indication: PROPHYLAXIS
     Dosage: UNK UNK, PRN
     Route: 042
     Dates: start: 20110315, end: 20110411
  34. METOCLOPRAMIDE [Concomitant]
     Dosage: UNK UNK, Q12H
     Dates: start: 20110325, end: 20110325
  35. METOCLOPRAMIDE [Concomitant]
     Dosage: UNK, TID
     Route: 048
     Dates: start: 20110414, end: 20110416
  36. LORAZEPAM [Concomitant]
     Dosage: UNK, Q12H
     Route: 048
     Dates: start: 20110409, end: 20110409
  37. HALOPERIDOL [Concomitant]
     Indication: MUSCLE RIGIDITY
     Dosage: UNK UNK, ONCE
     Route: 048
     Dates: start: 20110325, end: 20110325
  38. DIPYRONE INJ [Concomitant]
     Indication: OROPHARYNGEAL PAIN
     Dosage: UNK
     Route: 048
     Dates: start: 20110329, end: 20110329
  39. METFORMIN HYDROCHLORIDE [Concomitant]
     Indication: DIABETES MELLITUS
     Dosage: UNK UNK, Q12H
     Route: 048
     Dates: start: 20110411, end: 20110418
  40. POSACONAZOLE [Concomitant]
     Indication: ANTIFUNGAL PROPHYLAXIS
     Dosage: FREQUENCY: TWICE (2X)
     Route: 048
     Dates: start: 20110330, end: 20110331
  41. ALUMINUM HYDROXIDE (+) MAGNESIUM HYDROXIDE (+) OXETHAZAINE [Concomitant]
     Indication: ABDOMINAL PAIN UPPER
     Dosage: UNK, PRN
     Route: 048
     Dates: start: 20110402, end: 20110402
  42. BUTYLSCOPOLAMINE BROMIDE [Concomitant]
     Indication: ABDOMINAL RIGIDITY
     Dosage: UNK UNK, ONCE
     Route: 042
     Dates: start: 20110412, end: 20110412
  43. DALTEPARIN SODIUM [Concomitant]
     Indication: THROMBOSIS PROPHYLAXIS
     Dosage: UNK UNK, QD
     Route: 058
     Dates: start: 20110414
  44. METOPROLOL SUCCINATE [Concomitant]
     Indication: HYPERTENSION
     Dosage: UNK UNK, QD
     Route: 048
     Dates: start: 20110315
  45. ALLOPURINOL [Concomitant]
     Indication: MINERAL SUPPLEMENTATION
     Dosage: UNK UNK, QD
     Route: 048
     Dates: start: 20110315, end: 20110322
  46. INSULIN HUMAN [Concomitant]
     Indication: DIABETES MELLITUS
     Dosage: UNK UNK, PRN
     Route: 042
     Dates: start: 20110316, end: 20110422
  47. IDARUBICIN HYDROCHLORIDE [Concomitant]
     Indication: ACUTE MYELOID LEUKAEMIA
     Dosage: UNK UNK, QOD
     Route: 042
     Dates: start: 20110319, end: 20110323
  48. METOCLOPRAMIDE [Concomitant]
     Dosage: UNK, QD
     Route: 048
     Dates: start: 20110408, end: 20110408
  49. METOCLOPRAMIDE [Concomitant]
     Dosage: UNK
     Route: 042
     Dates: start: 20110411, end: 20110411
  50. ACYCLOVIR [Concomitant]
     Indication: HERPES ZOSTER
     Dosage: FREQUENCY: THIRTEEN TIMES PER DAY
     Route: 042
     Dates: start: 20110324, end: 20110329
  51. LORAZEPAM [Concomitant]
     Dosage: UNK
     Route: 042
     Dates: start: 20110411, end: 20110411
  52. MAXIBOLIN [Concomitant]
     Indication: CONTRACEPTION
     Dosage: UNK UNK, QD
     Route: 048
     Dates: start: 20110406
  53. AMITRIPTYLINE HCL [Concomitant]
     Indication: DEPRESSION
     Dosage: UNK UNK, QD
     Route: 048
     Dates: start: 20110408
  54. SCOPOLAMINE HYDROBROMIDE [Concomitant]
     Indication: PROPHYLAXIS OF NAUSEA AND VOMITING
     Dosage: UNK UNK, ONCE
     Route: 062
     Dates: start: 20110410, end: 20110410
  55. TRETINOIN [Concomitant]
     Dosage: UNK, Q12H
     Route: 048
     Dates: start: 20110426
  56. AMPHOTERICIN B [Concomitant]
     Indication: PROPHYLAXIS
     Dosage: UNK UNK, Q4H
     Route: 048
     Dates: start: 20110315, end: 20110323
  57. PHYTONADIONE [Concomitant]
     Indication: SUPPORTIVE CARE
     Dosage: UNK UNK, QD
     Route: 042
     Dates: start: 20110414, end: 20110416
  58. POSACONAZOLE [Suspect]
     Dosage: 300 MG, QD
     Route: 042
     Dates: start: 20110325, end: 20110406
  59. POSACONAZOLE [Suspect]
     Dosage: 400 MG, BID
     Route: 048
     Dates: start: 20110407, end: 20110420
  60. RAMIPRIL [Concomitant]
     Indication: HYPERTENSION
     Dosage: UNK UNK, QD
     Route: 048
     Dates: start: 20110315, end: 20110323
  61. MEDROXYPROGESTERONE ACETATE [Concomitant]
     Indication: HORMONE LEVEL ABNORMAL
     Dosage: UNK UNK, QD
     Route: 048
     Dates: start: 20110315, end: 20110405
  62. SODIUM BICARBONATE [Concomitant]
     Dosage: UNK
     Route: 042
     Dates: start: 20110418, end: 20110425
  63. GRANISETRON [Concomitant]
     Dosage: UNK
     Route: 042
     Dates: start: 20110330, end: 20110401
  64. IDARUBICIN HYDROCHLORIDE [Concomitant]
     Dosage: UNK, QD
     Route: 042
     Dates: start: 20110418, end: 20110420
  65. MORPHINE SULFATE [Concomitant]
     Dosage: UNK
     Route: 042
     Dates: start: 20110315, end: 20110407
  66. HYDROXYUREA [Concomitant]
     Indication: ACUTE MYELOID LEUKAEMIA
     Dosage: UNK UNK, Q12H
     Route: 048
     Dates: start: 20110314, end: 20110318
  67. DIMENHYDRINATE [Concomitant]
     Indication: NAUSEA
     Dosage: UNK UNK, PRN
     Route: 042
     Dates: start: 20110321, end: 20110401
  68. LORAZEPAM [Concomitant]
     Dosage: UNK, ONCE
     Route: 048
     Dates: start: 20110408, end: 20110408
  69. BEBETINA [Concomitant]
     Dosage: UNK, QD
     Route: 042
     Dates: start: 20110330, end: 20110401
  70. DIPYRONE INJ [Concomitant]
     Indication: ABDOMINAL PAIN
     Dosage: UNK, PRN
     Route: 042
     Dates: start: 20110411, end: 20110412
  71. DIPYRONE INJ [Concomitant]
     Dosage: UNK, ONCE
     Route: 048
     Dates: start: 20110414, end: 20110414
  72. BUSERELIN ACETATE [Concomitant]
     Indication: MENSTRUAL DISORDER
  73. ALUMINUM HYDROXIDE (+) MAGNESIUM HYDROXIDE (+) OXETHAZAINE [Concomitant]
     Indication: DYSPEPSIA
     Dosage: UNK UNK, ONCE
     Route: 048
     Dates: start: 20110406, end: 20110406
  74. TORSEMIDE [Concomitant]
     Dosage: UNK, QD
     Route: 048
     Dates: start: 20110414
  75. CHROMIC CHLORIDE (+) CUPRIC CHLORIDE (+) FERRIC CHLORIDE (+) MANGANESE [Concomitant]
     Indication: NUTRITIONAL SUPPORT
     Dosage: UNK UNK, ONCE
     Route: 042
     Dates: start: 20110414, end: 20110414
  76. CYTARABINE [Concomitant]
     Indication: ACUTE MYELOID LEUKAEMIA
     Dosage: UNK UNK, QD
     Route: 048
     Dates: start: 20110319, end: 20110325
  77. MORPHINE SULFATE [Concomitant]
     Indication: BACTERIAL INFECTION
     Dosage: UNK UNK, PRN
     Route: 042
     Dates: start: 20110316, end: 20110408
  78. METOCLOPRAMIDE [Concomitant]
     Dosage: UNK
     Route: 048
     Dates: start: 20110402, end: 20110402
  79. METOCLOPRAMIDE [Concomitant]
     Dosage: UNK, QD
     Route: 042
     Dates: start: 20110405, end: 20110405
  80. METOCLOPRAMIDE [Concomitant]
     Dosage: UNK, PRN
     Route: 042
     Dates: start: 20110406, end: 20110408
  81. METOCLOPRAMIDE [Concomitant]
     Dosage: UNK
     Route: 048
     Dates: start: 20110409, end: 20110409
  82. ETOPOSIDE [Concomitant]
     Dosage: UNK, QD
     Route: 042
     Dates: start: 20110418, end: 20110420
  83. GENTAMICIN SULFATE [Concomitant]
     Indication: STENOTROPHOMONAS INFECTION
     Dosage: UNK UNK, QD
     Route: 043
     Dates: start: 20110324, end: 20110410
  84. DIMENHYDRINATE [Concomitant]
     Indication: VOMITING
     Dosage: UNK
     Route: 042
     Dates: start: 20110330, end: 20110401
  85. DIMENHYDRINATE [Concomitant]
     Dosage: UNK, TID
     Route: 042
     Dates: start: 20110401, end: 20110407
  86. DIMENHYDRINATE [Concomitant]
     Dosage: UNK, ONCE
     Route: 042
     Dates: start: 20110411, end: 20110411
  87. LORAZEPAM [Concomitant]
     Dosage: UNK, TID
     Route: 048
     Dates: start: 20110408, end: 20110408
  88. BEBETINA [Concomitant]
     Indication: PYREXIA
     Dosage: UNK UNK, ONCE
     Route: 042
     Dates: start: 20110324, end: 20110324
  89. BUSERELIN [Concomitant]
     Indication: MENORRHAGIA
     Dosage: UNK UNK, TID
     Route: 045
     Dates: start: 20110325, end: 20110404
  90. HYDROMORPHONE HYDROCHLORIDE [Concomitant]
     Indication: ABDOMINAL PAIN
     Dosage: UNK UNK, PRN
     Route: 042
     Dates: start: 20110407, end: 20110410
  91. AMLODIPINE [Concomitant]
     Indication: HYPERTENSION
     Dosage: UNK UNK, QD
     Route: 048
     Dates: start: 20110315
  92. PANTOPRAZOLE [Concomitant]
     Dosage: UNK
     Route: 042
     Dates: start: 20110324, end: 20110401
  93. IMIPENEM [Concomitant]
     Indication: INFECTION PROPHYLAXIS
     Dosage: UNK UNK, QID
     Route: 042
     Dates: start: 20110323, end: 20110402
  94. GRANISETRON [Concomitant]
     Indication: PROPHYLAXIS OF NAUSEA AND VOMITING
     Dosage: UNK UNK, QD
     Route: 042
     Dates: start: 20110319, end: 20110325
  95. GRANISETRON [Concomitant]
     Dosage: UNK, QD
     Route: 042
     Dates: start: 20110418, end: 20110425
  96. CYTARABINE [Concomitant]
     Dosage: UNK
     Route: 042
     Dates: start: 20110418, end: 20110424
  97. METOCLOPRAMIDE [Concomitant]
     Indication: NAUSEA
     Dosage: UNK UNK, ONCE
     Route: 048
     Dates: start: 20110316, end: 20110316
  98. DIPYRONE INJ [Concomitant]
     Indication: HERPES ZOSTER
     Dosage: UNK UNK, ONCE
     Route: 042
     Dates: start: 20110325, end: 20110325
  99. ICELAND MOSS [Concomitant]
     Indication: OROPHARYNGEAL PAIN
     Dosage: UNK UNK, QD
     Route: 042
     Dates: start: 20110329, end: 20110329
  100. CEFTAZIDIME [Concomitant]
     Indication: STENOTROPHOMONAS INFECTION
     Dosage: UNK UNK, TID
     Route: 042
     Dates: start: 20110402, end: 20110412
  101. DEXAMETASON [Concomitant]
     Indication: PROPHYLAXIS OF NAUSEA AND VOMITING
     Dosage: UNK UNK, Q12H
     Route: 048
     Dates: start: 20110408, end: 20110412

REACTIONS (2)
  - NAUSEA [None]
  - VOMITING [None]
